FAERS Safety Report 11670862 (Version 1)
Quarter: 2015Q4

REPORT INFORMATION
  Report Type: Spontaneous
  Country: US (occurrence: US)
  Receive Date: 20151027
  Receipt Date: 20151027
  Transmission Date: 20160304
  Serious: No
  Sender: FDA-Public Use
  Company Number: US-ELI_LILLY_AND_COMPANY-US201005005823

PATIENT
  Sex: Female

DRUGS (3)
  1. FORTEO [Suspect]
     Active Substance: TERIPARATIDE
     Indication: OSTEOPOROSIS
     Dosage: 20 UG, DAILY (1/D)
     Dates: start: 200905
  2. DIGOXIN. [Concomitant]
     Active Substance: DIGOXIN
  3. NASONEX [Concomitant]
     Active Substance: MOMETASONE FUROATE

REACTIONS (4)
  - Lower limb fracture [Unknown]
  - Ligament sprain [Unknown]
  - Wrist fracture [Unknown]
  - Fall [Unknown]

NARRATIVE: CASE EVENT DATE: 20100504
